FAERS Safety Report 9213673 (Version 6)
Quarter: 2013Q4

REPORT INFORMATION
  Report Type: Report from Study
  Country: US (occurrence: US)
  Receive Date: 20130405
  Receipt Date: 20131021
  Transmission Date: 20140711
  Serious: Yes (Hospitalization)
  Sender: FDA-Public Use
  Company Number: US-VERTEX PHARMACEUTICALS INC.-2013-004491

PATIENT
  Age: 44 Year
  Sex: Female
  Weight: 89 kg

DRUGS (27)
  1. VX-950 (TELAPREVIR) [Suspect]
     Indication: HEPATITIS C
     Dosage: 750 MG, TID
     Route: 048
     Dates: start: 20130301, end: 20130525
  2. RIBAVIRIN [Suspect]
     Indication: HEPATITIS C
     Dosage: 600 MG, BID
     Route: 048
     Dates: start: 20130301, end: 20130808
  3. PEGASYS [Suspect]
     Indication: HEPATITIS C
     Dosage: 180 ?G, QW
     Route: 058
     Dates: start: 20130301, end: 20130808
  4. AMLODIPINE [Concomitant]
     Dosage: 10 MG, UNK
     Dates: start: 20130504
  5. GABAPENTIN [Concomitant]
     Dosage: 300 MG, QD
     Route: 048
  6. LISINOPRIL [Concomitant]
     Dosage: 40 MG, UNK
     Dates: start: 20130106
  7. MORPHINE [Concomitant]
     Dosage: 60 MG, TID
     Route: 048
     Dates: start: 20130424
  8. PROMETHAZINE [Concomitant]
     Dosage: 25 MG, EVERY 6 HRS
     Route: 048
     Dates: start: 20130410
  9. ZOLPIDEM [Concomitant]
     Dosage: 10 MG, QD
     Route: 048
     Dates: start: 20121127
  10. ALBUTEROL SULFATE [Concomitant]
     Dosage: 90 ?G, PRN
     Dates: start: 20130430, end: 20130510
  11. ATROVENT HFA [Concomitant]
     Dosage: UNK, PRN
     Dates: start: 20130430, end: 20130510
  12. AUGMENTIN [Concomitant]
     Dosage: 875MG-125MG, PRN
     Route: 048
     Dates: start: 20130507, end: 20130521
  13. AZITHROMYCIN [Concomitant]
     Dosage: 500 MG, QD
     Route: 048
     Dates: start: 20130430, end: 20130505
  14. CHLORPHENIRAMINE [Concomitant]
     Dosage: 4 MG, QD
     Route: 048
     Dates: start: 20130507
  15. DIAZEPAM [Concomitant]
     Dosage: 10 MG, QD
     Route: 048
     Dates: start: 20130425
  16. HYDROCHLOROTHIAZIDE [Concomitant]
     Dosage: 25 MG, UNK
     Dates: start: 20120410
  17. HYDROCHLOROTHIAZIDE [Concomitant]
     Dosage: 12.5 MG, UNK
     Dates: start: 20120830
  18. HYDROCODONE/ACETAMINOPHEN [Concomitant]
     Dosage: 10 MG-325 MG
     Dates: start: 20130422
  19. HYDROMORPHONE [Concomitant]
     Dosage: UP TO 32 MG, QD
     Dates: start: 20130425
  20. IPRATROPIUM BROMIDE AND ALBUTEROL SULFATE [Concomitant]
     Dosage: 0.5 MG-3 MG/ 3 ML, 4 TIMES A DAY
     Dates: start: 20130507
  21. NORVASC [Concomitant]
     Dosage: 10 MG, QD
     Route: 048
  22. OXYCODONE / ACETAMINOPHEN [Concomitant]
     Dosage: 5-325 MG
     Dates: start: 20130423
  23. PAROXETINE [Concomitant]
     Dosage: 40 MG, QD
     Dates: start: 20130316
  24. PAXIL [Concomitant]
     Dosage: 20 MG, QD
     Route: 048
     Dates: start: 20121127
  25. AMBIEN [Concomitant]
     Dosage: 10 MG, QD PM
     Route: 048
     Dates: start: 20121127
  26. LEVOTHYROXINE [Concomitant]
     Dosage: 25 ?G, QD
     Route: 048
     Dates: start: 20130805
  27. ZOFRAN [Concomitant]
     Dosage: 8 MG, TID
     Route: 048
     Dates: start: 20130613

REACTIONS (22)
  - Systemic inflammatory response syndrome [Recovered/Resolved]
  - Arthritis [Recovered/Resolved]
  - Tendon rupture [Not Recovered/Not Resolved]
  - Infective exacerbation of chronic obstructive airways disease [Unknown]
  - Leukopenia [Unknown]
  - Arthralgia [Not Recovered/Not Resolved]
  - Joint swelling [Unknown]
  - Acute sinusitis [Unknown]
  - Urinary tract infection [Unknown]
  - Pyrexia [Unknown]
  - Skin disorder [Not Recovered/Not Resolved]
  - Productive cough [Unknown]
  - Hair disorder [Unknown]
  - Hyperhidrosis [Recovered/Resolved]
  - Burning sensation [Recovered/Resolved]
  - Asthenia [Unknown]
  - Local swelling [Unknown]
  - Rash [Unknown]
  - Urticaria [Unknown]
  - Thrombocytopenia [Unknown]
  - Nausea [Unknown]
  - Vomiting [Unknown]
